FAERS Safety Report 10136203 (Version 1)
Quarter: 2014Q2

REPORT INFORMATION
  Report Type: Spontaneous
  Country: AU (occurrence: AU)
  Receive Date: 20140429
  Receipt Date: 20140429
  Transmission Date: 20141212
  Serious: Yes (Disabling)
  Sender: FDA-Public Use
  Company Number: AU-ROCHE-1389523

PATIENT
  Sex: Male

DRUGS (6)
  1. LUCENTIS [Suspect]
     Indication: AGE-RELATED MACULAR DEGENERATION
     Route: 050
     Dates: start: 2007
  2. LUCENTIS [Suspect]
     Indication: CHORIORETINOPATHY
  3. AVASTIN [Suspect]
     Indication: AGE-RELATED MACULAR DEGENERATION
     Route: 065
     Dates: start: 2006
  4. AVASTIN [Suspect]
     Indication: CHORIORETINOPATHY
  5. EYLEA [Suspect]
     Indication: AGE-RELATED MACULAR DEGENERATION
     Route: 065
     Dates: end: 2012
  6. EYLEA [Suspect]
     Indication: CHORIORETINOPATHY

REACTIONS (2)
  - Visual acuity reduced [Not Recovered/Not Resolved]
  - Drug ineffective [Unknown]
